FAERS Safety Report 4776107-6 (Version None)
Quarter: 2005Q3

REPORT INFORMATION
  Report Type: 
  Country: None (occurrence: None)
  Receive Date: 20050914
  Receipt Date: 20050322
  Transmission Date: 20060218
  Serious: Yes (Death)
  Sender: FDA-Public Use
  Company Number: 163-20785-05030621

PATIENT
  Age: 50 Year
  Sex: Male

DRUGS (3)
  1. THALOMID [Suspect]
     Indication: NON-SMALL CELL LUNG CANCER
     Dosage: 200 MG, QHS, ORAL
     Route: 048
     Dates: start: 20050131, end: 20050101
  2. THALOMID [Suspect]
     Indication: NON-SMALL CELL LUNG CANCER
     Dosage: 200 MG, QHS, ORAL
     Route: 048
     Dates: start: 20050307, end: 20050301
  3. DOCETAXEL (DOXETAXEL) (UNKNOWN) [Suspect]
     Indication: NON-SMALL CELL LUNG CANCER
     Dosage: 46 MG, INTRAVENOUS
     Route: 042
     Dates: start: 20050131, end: 20050101

REACTIONS (1)
  - DEATH [None]
